FAERS Safety Report 8156078-5 (Version None)
Quarter: 2012Q1

REPORT INFORMATION
  Report Type: 
  Country: None (occurrence: None)
  Receive Date: 20120216
  Receipt Date: 20120130
  Transmission Date: 20120608
  Serious: Yes (Hospitalization)
  Sender: FDA-Public Use
  Company Number: 024007

PATIENT
  Age: 60 Year
  Sex: Female
  Weight: 73.5 kg

DRUGS (11)
  1. NERISONA (DIFLUCORTOLONE VALERATE) CREAM [Concomitant]
  2. HIRUDOID (HEPARINOID) OINTMENT [Concomitant]
  3. AZOPT (BRINZOLAMIDE) EYE DROPS, SUSPENSION [Concomitant]
  4. MICARDIS [Concomitant]
  5. KALIMATE (CALCIUM POLYSTYRENE SULFONATE) SYRUP [Concomitant]
  6. FAMOTIDINE (FAMOTIDINE) TABLET [Concomitant]
  7. PEGAPTANIB SODIUM (PEGAPTANIB SODIUM) UNKNOWN [Suspect]
     Indication: DIABETIC RETINAL OEDEMA
     Dosage: UNK, INTRAOCULAR
     Route: 031
     Dates: start: 20110425, end: 20111005
  8. CONIEL (BENIDIPINE HYDROCHLORIDE) [Concomitant]
  9. NOVORAPID (INSULIN ASPART) INJECTION [Concomitant]
  10. CRESTOR (ROSUVASTATIN) TABLET [Concomitant]
  11. XALACOM (LATANOPROST, TIMOLOL MALEATE) [Concomitant]

REACTIONS (2)
  - GLAUCOMA [None]
  - CONDITION AGGRAVATED [None]
